FAERS Safety Report 5130765-5 (Version None)
Quarter: 2006Q3

REPORT INFORMATION
  Report Type: 
  Country: None (occurrence: None)
  Receive Date: 20060829
  Receipt Date: 20060724
  Transmission Date: 20061208
  Serious: No
  Sender: FDA-Public Use
  Company Number: PHEH2006US07140

PATIENT
  Age: 67 Year
  Sex: Female
  Weight: 93.9 kg

DRUGS (9)
  1. EXJADE [Suspect]
     Indication: IRON OVERLOAD
     Dosage: ORAL
     Route: 048
     Dates: start: 20060511
  2. COUMADIN [Suspect]
  3. NORVASC [Concomitant]
  4. INTERFERON ALFA (INTERFERON ALFA) [Concomitant]
  5. ALLOPURINOL [Concomitant]
  6. MAGNESIUM CHLORIDE (MAGNESIUM CHLORIDE) [Concomitant]
  7. MAGIC MOUTHWASH (DIPHENHYDRAMINE HYDROCHLORIDE) [Concomitant]
  8. OXYCONTIN [Concomitant]
  9. TOPROL-XL [Concomitant]

REACTIONS (3)
  - BLOOD URINE PRESENT [None]
  - CHROMATURIA [None]
  - INTERNATIONAL NORMALISED RATIO INCREASED [None]
